FAERS Safety Report 9744866 (Version 1)
Quarter: 2013Q4

REPORT INFORMATION
  Report Type: Report from Study
  Country: CA (occurrence: CA)
  Receive Date: 20131211
  Receipt Date: 20131211
  Transmission Date: 20140711
  Serious: Yes (Death)
  Sender: FDA-Public Use
  Company Number: CA-ROCHE-1317821

PATIENT
  Sex: Male

DRUGS (5)
  1. ZELBORAF [Suspect]
     Indication: METASTATIC MALIGNANT MELANOMA
     Route: 048
     Dates: start: 201311
  2. WARFARIN [Concomitant]
     Dosage: MAY CHANGE WITH INR Q 2-3 DAYS
     Route: 065
  3. VENLAFAXINE [Concomitant]
  4. APO CANDESARTAN [Concomitant]
  5. APO-ATORVASTATIN [Concomitant]

REACTIONS (1)
  - Death [Fatal]
